FAERS Safety Report 10219224 (Version 5)
Quarter: 2015Q2

REPORT INFORMATION
  Report Type: Spontaneous
  Country: US (occurrence: US)
  Receive Date: 20140605
  Receipt Date: 20150605
  Transmission Date: 20150821
  Serious: No
  Sender: FDA-Public Use
  Company Number: US-BAYER-2014-082266

PATIENT
  Age: 56 Year
  Sex: Female
  Weight: 67.12 kg

DRUGS (3)
  1. CLIMARA PRO [Suspect]
     Active Substance: ESTRADIOL\LEVONORGESTREL
     Indication: MOOD SWINGS
     Dosage: UNK
     Route: 062
  2. CLIMARA PRO [Suspect]
     Active Substance: ESTRADIOL\LEVONORGESTREL
     Indication: HOT FLUSH
     Dosage: UNK
     Route: 062
     Dates: start: 2014
  3. CLIMARA PRO [Suspect]
     Active Substance: ESTRADIOL\LEVONORGESTREL
     Indication: ANXIETY
     Dosage: UNK
     Route: 062

REACTIONS (11)
  - Emotional disorder [None]
  - Product physical issue [None]
  - Application site rash [Not Recovered/Not Resolved]
  - Product use issue [None]
  - Feeling abnormal [None]
  - Product adhesion issue [None]
  - Product quality issue [None]
  - Application site hypersensitivity [Not Recovered/Not Resolved]
  - Drug ineffective [None]
  - Anxiety [None]
  - Mood swings [None]

NARRATIVE: CASE EVENT DATE: 2014
